FAERS Safety Report 7665030-5 (Version None)
Quarter: 2011Q3

REPORT INFORMATION
  Report Type: 
  Country: None (occurrence: None)
  Receive Date: 20110806
  Receipt Date: 20110215
  Transmission Date: 20111222
  Serious: No
  Sender: FDA-Public Use
  Company Number: US-ABBOTT-11P-163-0705387-00

PATIENT
  Sex: Male

DRUGS (4)
  1. VYTORIN [Concomitant]
     Indication: PRODUCT USED FOR UNKNOWN INDICATION
  2. MIRAPEX [Concomitant]
     Indication: PRODUCT USED FOR UNKNOWN INDICATION
  3. NIASPAN [Suspect]
     Indication: BLOOD CHOLESTEROL
     Dosage: AT DINNER
     Dates: end: 20110213
  4. DILTIAZEM [Concomitant]
     Indication: PRODUCT USED FOR UNKNOWN INDICATION

REACTIONS (7)
  - HYPERAESTHESIA [None]
  - SKIN BURNING SENSATION [None]
  - SKIN FISSURES [None]
  - EAR DISCOMFORT [None]
  - FLUSHING [None]
  - URTICARIA [None]
  - FEELING HOT [None]
